FAERS Safety Report 5306313-3 (Version None)
Quarter: 2007Q2

REPORT INFORMATION
  Report Type: 
  Country: None (occurrence: None)
  Receive Date: 20070424
  Receipt Date: 20070417
  Transmission Date: 20071010
  Serious: Yes (Death, Hospitalization)
  Sender: FDA-Public Use
  Company Number: FRWYE923807MAR07

PATIENT
  Age: 83 Year
  Sex: Female
  Weight: 65 kg

DRUGS (7)
  1. EFFEXOR [Suspect]
     Indication: DEPRESSION
     Dosage: 100 MG TOTAL DAILY
     Route: 048
     Dates: start: 20070112, end: 20070119
  2. ACETYLCYSTEINE [Concomitant]
     Dosage: UNKNOWN
     Dates: start: 20070101, end: 20070101
  3. LASIX [Concomitant]
     Route: 048
     Dates: end: 20070119
  4. LIPANTHYL [Concomitant]
     Route: 048
     Dates: end: 20070117
  5. TRAMADOL HCL [Suspect]
     Indication: BACK PAIN
     Dosage: 200 MG TOTAL DAILY
     Route: 042
     Dates: start: 20070109, end: 20070109
  6. TRAMADOL HCL [Suspect]
     Dosage: UNKNOWN
     Route: 048
     Dates: start: 20070110, end: 20070119
  7. ACETAMINOPHEN AND TRAMADOL HCL [Concomitant]
     Indication: BACK PAIN
     Dosage: 1 TO 4 TABLETS TOTAL DAILY
     Route: 048
     Dates: start: 20070109

REACTIONS (7)
  - ATRIAL FIBRILLATION [None]
  - CONDITION AGGRAVATED [None]
  - DEPRESSED LEVEL OF CONSCIOUSNESS [None]
  - ENCEPHALOPATHY [None]
  - HEPATITIS FULMINANT [None]
  - RENAL CYST [None]
  - RENAL FAILURE [None]
